FAERS Safety Report 6607495-3 (Version None)
Quarter: 2010Q1

REPORT INFORMATION
  Report Type: 
  Country: None (occurrence: None)
  Receive Date: 20100301
  Receipt Date: 20100215
  Transmission Date: 20100710
  Serious: Yes (Disabling, Other)
  Sender: FDA-Public Use
  Company Number: PHEH2008US08678

PATIENT
  Sex: Female

DRUGS (28)
  1. ZOMETA [Suspect]
     Indication: BONE DENSITY ABNORMAL
     Dosage: UNK
     Route: 042
  2. FOSAMAX [Suspect]
     Dosage: UNK
  3. LEXAPRO [Concomitant]
  4. MICARDIS [Concomitant]
  5. DITROPAN XL [Concomitant]
  6. VIVELLE-DOT [Concomitant]
  7. SYNTHROID [Concomitant]
  8. PRAVACHOL [Concomitant]
  9. COMBIVENT                               /GFR/ [Concomitant]
  10. SUDAFED 12 HOUR [Concomitant]
  11. THYROID TAB [Concomitant]
  12. DOXEPIN HCL [Concomitant]
  13. WELLBUTRIN [Concomitant]
  14. ADVAIR DISKUS 100/50 [Concomitant]
  15. LASIX [Concomitant]
  16. AGGRENOX [Concomitant]
  17. TESSALON [Concomitant]
  18. PREMARIN [Concomitant]
  19. PLAVIX [Concomitant]
  20. FENTANYL [Concomitant]
  21. CIPROFLOXACIN [Concomitant]
     Dosage: UNK
     Dates: end: 20090131
  22. LEVSIN [Concomitant]
  23. XANAX [Concomitant]
     Dosage: UNK
  24. ALLEGRA [Concomitant]
  25. WELLBUTRIN [Concomitant]
  26. VICODIN [Concomitant]
     Dosage: UNK
  27. ALTACE [Concomitant]
  28. KLONOPIN [Concomitant]

REACTIONS (38)
  - ABSCESS [None]
  - ANHEDONIA [None]
  - ANXIETY [None]
  - BACTERIAL DISEASE CARRIER [None]
  - BRONCHOPLEURAL FISTULA [None]
  - CEREBROVASCULAR DISORDER [None]
  - CHEST PAIN [None]
  - CHEST TUBE INSERTION [None]
  - COORDINATION ABNORMAL [None]
  - DEPRESSION [None]
  - EMPYEMA [None]
  - FAECAL INCONTINENCE [None]
  - FALL [None]
  - GAIT DISTURBANCE [None]
  - HYDROPNEUMOTHORAX [None]
  - INJURY [None]
  - INSOMNIA [None]
  - LIP AND/OR ORAL CAVITY CANCER [None]
  - LIP DISCOLOURATION [None]
  - LUNG LOBECTOMY [None]
  - LUNG NEOPLASM MALIGNANT [None]
  - MAMMOPLASTY [None]
  - MENOPAUSE [None]
  - NEUROPATHY PERIPHERAL [None]
  - OSTEONECROSIS [None]
  - OSTEOPENIA [None]
  - OSTEOPOROSIS [None]
  - PAIN [None]
  - PAIN IN EXTREMITY [None]
  - RENAL FAILURE ACUTE [None]
  - RIB FRACTURE [None]
  - ROTATOR CUFF SYNDROME [None]
  - SINUSITIS [None]
  - SYNCOPE [None]
  - THORACOTOMY [None]
  - TIBIA FRACTURE [None]
  - TOOTH DISORDER [None]
  - URINARY INCONTINENCE [None]
